FAERS Safety Report 24822677 (Version 1)
Quarter: 2025Q1

REPORT INFORMATION
  Report Type: Spontaneous
  Country: CA (occurrence: CA)
  Receive Date: 20250109
  Receipt Date: 20250109
  Transmission Date: 20250408
  Serious: No
  Sender: ALKEM
  Company Number: CA-ALKEM LABORATORIES LIMITED-CA-ALKEM-2024-00339

PATIENT

DRUGS (2)
  1. SILDENAFIL [Suspect]
     Active Substance: SILDENAFIL
     Indication: Brain injury
     Dosage: 2 MILLIGRAM/KILOGRAM, BID (Q12H (4MG/KG/DAY))
  2. SILDENAFIL [Suspect]
     Active Substance: SILDENAFIL
     Indication: Encephalopathy neonatal

REACTIONS (1)
  - Blood pressure decreased [Not Recovered/Not Resolved]
